FAERS Safety Report 9576150 (Version 1)
Quarter: 2013Q4

REPORT INFORMATION
  Report Type: Spontaneous
  Country: US (occurrence: US)
  Receive Date: 20131001
  Receipt Date: 20131001
  Transmission Date: 20140711
  Serious: No
  Sender: FDA-Public Use
  Company Number: US-AMGEN-USASP2013001383

PATIENT
  Age: 57 Year
  Sex: Female
  Weight: 71.66 kg

DRUGS (15)
  1. ENBREL [Suspect]
     Indication: PRODUCT USED FOR UNKNOWN INDICATION
     Dosage: 50 MG, QWK
     Route: 058
     Dates: start: 201112
  2. ORENCIA [Concomitant]
     Dosage: 125 MG/ML, UNK
     Dates: start: 201301
  3. METHOTREXATE [Concomitant]
     Indication: RHEUMATOID ARTHRITIS
     Dosage: 2.5 MG, UNK
  4. PROAIR HFA [Concomitant]
     Dosage: UNK
  5. PULMICORT [Concomitant]
     Dosage: 200 MUG, UNK
  6. LIPITOR [Concomitant]
     Dosage: 40 MG, UNK
  7. LEFLUNOMIDE [Concomitant]
     Dosage: 20 MG, UNK
  8. LOVASTATIN [Concomitant]
     Dosage: 20 MG, UNK
  9. NABUMETONE [Concomitant]
     Dosage: 500 MG, UNK
  10. FOLIC ACID [Concomitant]
     Dosage: 1 MG, UNK
  11. VERAPAMIL [Concomitant]
     Dosage: 120 MG, UNK
  12. HYDROCHLOROTHIAZIDE WITH TRIAMTERENE [Concomitant]
     Dosage: 37.5-25
  13. LOSARTAN POTASSIUM [Concomitant]
     Dosage: 50 MG, UNK
  14. CALCIUM +D                         /00944201/ [Concomitant]
     Dosage: 500
  15. TYLENOL                            /00020001/ [Concomitant]
     Dosage: 650 MG, 8 HR TABLET

REACTIONS (2)
  - Asthma [Unknown]
  - Therapeutic response decreased [Unknown]
